FAERS Safety Report 7374727-6 (Version None)
Quarter: 2011Q1

REPORT INFORMATION
  Report Type: 
  Country: None (occurrence: None)
  Receive Date: 20110325
  Receipt Date: 20101004
  Transmission Date: 20110831
  Serious: No
  Sender: FDA-Public Use
  Company Number: US-MYLANLABS-2010S1016513

PATIENT
  Age: 57 Year
  Sex: Female

DRUGS (7)
  1. FENTANYL-100 [Suspect]
     Indication: PAIN
     Dosage: CHANGED Q 48H
     Route: 062
     Dates: end: 20100907
  2. HYDROCODONE BITARTRATE [Concomitant]
     Indication: BREAKTHROUGH PAIN
     Dosage: 10MG
  3. AMBIEN [Concomitant]
  4. FENTANYL-100 [Suspect]
     Dosage: CHANGED Q 48H
     Route: 062
     Dates: start: 20100909
  5. NYSTATIN [Concomitant]
  6. FENTANYL-100 [Suspect]
     Indication: BACK PAIN
     Dosage: CHANGED Q 48H
     Route: 062
     Dates: end: 20100907
  7. FENTANYL-100 [Suspect]
     Dosage: CHANGED Q 48H
     Route: 062
     Dates: start: 20100909

REACTIONS (5)
  - DRUG EFFECT INCREASED [None]
  - CONFUSIONAL STATE [None]
  - NAUSEA [None]
  - DIZZINESS [None]
  - EUPHORIC MOOD [None]
